FAERS Safety Report 4352887-9 (Version None)
Quarter: 2004Q2

REPORT INFORMATION
  Report Type: 
  Country: None (occurrence: None)
  Receive Date: 20040504
  Receipt Date: 20040325
  Transmission Date: 20050107
  Serious: Yes (Disabling)
  Sender: FDA-Public Use
  Company Number: FR-AMGEN-UK070417

PATIENT
  Age: 27 Month
  Sex: Female

DRUGS (19)
  1. NEUPOGEN [Suspect]
     Indication: CHEMOTHERAPY
     Route: 042
     Dates: start: 20030621, end: 20030625
  2. CYTARABINE [Suspect]
     Route: 042
     Dates: start: 20030620, end: 20030625
  3. AMBISOME [Suspect]
     Route: 042
     Dates: start: 20030623, end: 20030625
  4. FLUDARA [Suspect]
     Route: 042
     Dates: start: 20030621, end: 20030625
  5. BACTRIM [Suspect]
     Dates: start: 20030620, end: 20030707
  6. ZOPHREN [Concomitant]
     Dates: start: 20030620, end: 20030625
  7. FORTUM [Concomitant]
     Dates: start: 20030617, end: 20030707
  8. AMIKLIN [Concomitant]
     Dates: start: 20030617, end: 20030707
  9. VANCOMYCIN [Concomitant]
     Dates: start: 20030621, end: 20030707
  10. ACETAMINOPHEN [Concomitant]
     Dates: start: 20030618, end: 20030619
  11. URATE OXIDASE [Concomitant]
     Dates: start: 20030622, end: 20030625
  12. DAUNORUBICIN HCL [Concomitant]
     Dates: start: 20030621, end: 20030625
  13. HEPARIN [Concomitant]
     Dates: start: 20030618, end: 20030619
  14. DEXAMETHASONE SODIUM PHOSPHATE [Concomitant]
     Dates: start: 20030621, end: 20030627
  15. POLARAMINE [Concomitant]
     Dates: start: 20030622, end: 20030707
  16. PLITICAN [Concomitant]
     Dates: start: 20030705, end: 20030705
  17. LOXEN [Concomitant]
     Dates: start: 20030704, end: 20030707
  18. ARTIFICIAL TEARS [Concomitant]
     Dates: start: 20030621, end: 20030707
  19. ZOVIRAX [Concomitant]
     Dates: start: 20030620, end: 20030706

REACTIONS (10)
  - BLINDNESS [None]
  - ELECTROENCEPHALOGRAM ABNORMAL [None]
  - ENCEPHALITIS VIRAL [None]
  - EYE DISORDER [None]
  - GASTROINTESTINAL DISORDER [None]
  - INFLAMMATION [None]
  - MULTI-ORGAN FAILURE [None]
  - NECROSIS [None]
  - OPTIC NERVE INJURY [None]
  - PYREXIA [None]
